FAERS Safety Report 6594620-6 (Version None)
Quarter: 2010Q1

REPORT INFORMATION
  Report Type: 
  Country: None (occurrence: None)
  Receive Date: 20100222
  Receipt Date: 20090430
  Transmission Date: 20100710
  Serious: No
  Sender: FDA-Public Use
  Company Number: US-BRISTOL-MYERS SQUIBB COMPANY-14609655

PATIENT
  Sex: Female

DRUGS (1)
  1. TAXOL [Suspect]
     Dates: start: 19940101

REACTIONS (2)
  - FATIGUE [None]
  - PAIN [None]
